FAERS Safety Report 25316842 (Version 1)
Quarter: 2025Q2

REPORT INFORMATION
  Report Type: Spontaneous
  Country: FR (occurrence: FR)
  Receive Date: 20250515
  Receipt Date: 20250515
  Transmission Date: 20250716
  Serious: Yes (Hospitalization, Other)
  Sender: AUROBINDO
  Company Number: FR-ZENTIVA-2025-ZT-000374

PATIENT
  Age: 56 Year
  Sex: Male

DRUGS (4)
  1. PRAMIPEXOLE [Suspect]
     Active Substance: PRAMIPEXOLE
     Indication: Product used for unknown indication
     Route: 065
  2. PRAMIPEXOLE [Suspect]
     Active Substance: PRAMIPEXOLE
     Route: 065
  3. L DOPA [Concomitant]
     Active Substance: LEVODOPA
     Indication: Parkinson^s disease
     Route: 065
  4. L DOPA [Concomitant]
     Active Substance: LEVODOPA
     Route: 065

REACTIONS (5)
  - Impulse-control disorder [Recovered/Resolved]
  - Drug ineffective [Unknown]
  - Hypersexuality [Recovered/Resolved]
  - Compulsive shopping [Recovered/Resolved]
  - Gambling disorder [Recovered/Resolved]
